FAERS Safety Report 8430259-5 (Version None)
Quarter: 2012Q2

REPORT INFORMATION
  Report Type: 
  Country: None (occurrence: None)
  Receive Date: 20120323
  Receipt Date: 20110825
  Transmission Date: 20120825
  Serious: Yes (Other)
  Sender: FDA-Public Use
  Company Number: 163-21880-11083152

PATIENT
  Age: 78 Year
  Sex: Male

DRUGS (5)
  1. REVLIMID [Suspect]
     Indication: MULTIPLE MYELOMA
     Dosage: ONCE DAILY X 21 DAYS, PO
     Route: 048
     Dates: start: 20110501, end: 20110101
  2. CELEBREX [Concomitant]
  3. ADVAIR HFA [Concomitant]
  4. SPIRIVA [Concomitant]
  5. TRAMADOL HCL [Concomitant]

REACTIONS (1)
  - FULL BLOOD COUNT DECREASED [None]
